FAERS Safety Report 4488606-5 (Version None)
Quarter: 2004Q4

REPORT INFORMATION
  Report Type: 
  Country: None (occurrence: None)
  Receive Date: 20041026
  Receipt Date: 20041012
  Transmission Date: 20050328
  Serious: Yes (Death, Other)
  Sender: FDA-Public Use
  Company Number: USA041080945

PATIENT
  Age: 57 Year
  Sex: Female

DRUGS (3)
  1. FORTEO [Suspect]
  2. PREDNISONE [Concomitant]
  3. HUMIRA [Concomitant]

REACTIONS (4)
  - CONDITION AGGRAVATED [None]
  - INFECTION [None]
  - LUNG DISORDER [None]
  - SPINAL FRACTURE [None]
